FAERS Safety Report 15599464 (Version 1)
Quarter: 2018Q4

REPORT INFORMATION
  Report Type: Spontaneous
  Country: US (occurrence: US)
  Receive Date: 20181108
  Receipt Date: 20181108
  Transmission Date: 20190205
  Serious: Yes (Other)
  Sender: FDA-Public Use
  Company Number: US-PFIZER INC-2018452223

PATIENT
  Sex: Female

DRUGS (2)
  1. ADVIL [Suspect]
     Active Substance: IBUPROFEN
     Indication: PAIN MANAGEMENT
  2. ADVIL [Suspect]
     Active Substance: IBUPROFEN
     Indication: NERVE COMPRESSION
     Dosage: UNK, DAILY
     Route: 048

REACTIONS (1)
  - Colitis microscopic [Unknown]
